FAERS Safety Report 7015035-2 (Version None)
Quarter: 2010Q3

REPORT INFORMATION
  Report Type: 
  Country: None (occurrence: None)
  Receive Date: 20100927
  Receipt Date: 20100916
  Transmission Date: 20110219
  Serious: Yes (Other)
  Sender: FDA-Public Use
  Company Number: BR-SANOFI-AVENTIS-2010SA056058

PATIENT
  Sex: Female
  Weight: 70 kg

DRUGS (10)
  1. LANTUS [Suspect]
     Dosage: 10-12 IU
     Route: 058
     Dates: start: 20020101
  2. OPTIPEN [Suspect]
  3. REPAGLINIDE [Concomitant]
     Route: 048
     Dates: start: 20040101
  4. ASPIRIN [Concomitant]
     Indication: ANTICOAGULANT THERAPY
     Route: 048
     Dates: start: 20090101
  5. LOSARTAN POTASSIUM AND HYDROCHLOROTHIAZIDE [Concomitant]
     Indication: HYPERTENSION
     Route: 048
  6. JANUVIA [Concomitant]
     Route: 048
  7. ROSUVASTATIN [Concomitant]
     Route: 048
     Dates: start: 20090101
  8. PIOGLITAZONE [Concomitant]
     Route: 048
     Dates: start: 20040101
  9. SUSTRATE [Concomitant]
     Indication: CARDIOVASCULAR EVENT PROPHYLAXIS
     Route: 048
  10. PURAN T4 [Concomitant]
     Indication: HYPOTHYROIDISM
     Route: 048

REACTIONS (3)
  - CONDITION AGGRAVATED [None]
  - CORONARY ARTERY OCCLUSION [None]
  - HYPERTENSION [None]
